FAERS Safety Report 5503565-1 (Version None)
Quarter: 2007Q4

REPORT INFORMATION
  Report Type: 
  Country: None (occurrence: None)
  Receive Date: 20071029
  Receipt Date: 20071016
  Transmission Date: 20080405
  Serious: Yes (Death, Hospitalization)
  Sender: FDA-Public Use
  Company Number: 2006JP002855

PATIENT
  Age: 75 Year
  Sex: Female
  Weight: 47 kg

DRUGS (13)
  1. TACROLIMUS [Suspect]
     Indication: RHEUMATOID ARTHRITIS
     Dosage: 1.5 MG, UID/QD, ORAL; 1 MG, UID/QD, ORAL
     Route: 048
     Dates: start: 20060216, end: 20060419
  2. TACROLIMUS [Suspect]
     Indication: RHEUMATOID ARTHRITIS
     Dosage: 1.5 MG, UID/QD, ORAL; 1 MG, UID/QD, ORAL
     Route: 048
     Dates: start: 20060513, end: 20060607
  3. TACROLIMUS [Suspect]
     Indication: RHEUMATOID ARTHRITIS
     Dosage: 1.5 MG, UID/QD, ORAL; 1 MG, UID/QD, ORAL
     Route: 048
     Dates: start: 20060608, end: 20060927
  4. TACROLIMUS [Suspect]
     Indication: RHEUMATOID ARTHRITIS
     Dosage: 1.5 MG, UID/QD, ORAL; 1 MG, UID/QD, ORAL
     Route: 048
     Dates: start: 20060928, end: 20061025
  5. PREDNISONE [Concomitant]
  6. ETODOLAC [Concomitant]
  7. AZULFIDINE EN-TABS [Concomitant]
  8. PROTECADIN (LAFUTIDINE) [Concomitant]
  9. MUCOSTA (REBAMIPIDE) [Concomitant]
  10. THEO-DUR [Concomitant]
  11. HOKUNALIN (TULOBUTEROL HYDROCHLORIDE) [Concomitant]
  12. RISEDRONATE SODIUM [Concomitant]
  13. MUCOSOLVAN (AMBROXOL HYDROCHLORIDE) [Concomitant]

REACTIONS (8)
  - BETA-N-ACETYL-D-GLUCOSAMINIDASE INCREASED [None]
  - BLOOD CREATININE INCREASED [None]
  - DEHYDRATION [None]
  - GLYCOSYLATED HAEMOGLOBIN INCREASED [None]
  - INTERSTITIAL LUNG DISEASE [None]
  - PNEUMONIA BACTERIAL [None]
  - PNEUMONIA CHLAMYDIAL [None]
  - UPPER LIMB FRACTURE [None]
